FAERS Safety Report 6228149-1 (Version None)
Quarter: 2009Q2

REPORT INFORMATION
  Report Type: 
  Country: None (occurrence: None)
  Receive Date: 20090612
  Receipt Date: 20090609
  Transmission Date: 20091009
  Serious: Yes (Hospitalization)
  Sender: FDA-Public Use
  Company Number: NL-BRISTOL-MYERS SQUIBB COMPANY-14658215

PATIENT
  Age: 61 Year
  Sex: Female
  Weight: 49 kg

DRUGS (8)
  1. CISPLATIN [Suspect]
     Indication: HEAD AND NECK CANCER
     Dosage: ALSO ON 04MAY09, RECENT INF: 04JUN09.
     Route: 042
     Dates: start: 20090505
  2. CETUXIMAB [Suspect]
     Indication: HEAD AND NECK CANCER
     Dosage: CETUXIMAB 2MG/ML. RECENT INF:25MAY09.
     Route: 042
     Dates: start: 20090203
  3. RADIOTHERAPY [Suspect]
     Indication: HEAD AND NECK CANCER
  4. MORPHINE [Concomitant]
     Indication: PAIN
     Route: 048
     Dates: start: 20090101
  5. PARACETAMOL [Concomitant]
     Indication: PAIN
     Route: 054
     Dates: start: 20090101
  6. MAGNESIUM SULFATE [Concomitant]
     Indication: HYPOMAGNESAEMIA
     Route: 042
     Dates: start: 20090529
  7. METOCLOPRAMIDE [Concomitant]
     Indication: ANTIEMETIC SUPPORTIVE CARE
     Route: 048
     Dates: start: 20090513
  8. OXYCODONE [Concomitant]
     Indication: PAIN
     Route: 048
     Dates: start: 20090501

REACTIONS (4)
  - HYPOCALCAEMIA [None]
  - HYPOMAGNESAEMIA [None]
  - MUCOSAL INFLAMMATION [None]
  - SKIN INFECTION [None]
